FAERS Safety Report 4572442-5 (Version None)
Quarter: 2005Q1

REPORT INFORMATION
  Report Type: 
  Country: None (occurrence: None)
  Receive Date: 20050207
  Receipt Date: 20050117
  Transmission Date: 20050727
  Serious: Yes (Death, Life-Threatening, Hospitalization)
  Sender: FDA-Public Use
  Company Number: MM-GLAXOSMITHKLINE-B0369927A

PATIENT
  Age: 19 Year
  Sex: Male
  Weight: 59.1 kg

DRUGS (2)
  1. ALBENDAZOLE [Suspect]
     Dates: start: 20050113
  2. DIETHYLCARBAMAZINE [Suspect]
     Dates: start: 20050113

REACTIONS (25)
  - ADVERSE DRUG REACTION [None]
  - BLOOD PRESSURE INCREASED [None]
  - BRAIN OEDEMA [None]
  - CARDIAC ARREST [None]
  - CYANOSIS [None]
  - DIZZINESS [None]
  - DYSKINESIA [None]
  - DYSPNOEA [None]
  - HAEMATEMESIS [None]
  - HEART RATE INCREASED [None]
  - HEPATIC CONGESTION [None]
  - HYPERHIDROSIS [None]
  - MAZZOTTI REACTION [None]
  - MUSCLE RIGIDITY [None]
  - NECK PAIN [None]
  - PANCREATIC DISORDER [None]
  - PARAESTHESIA [None]
  - PERIPHERAL COLDNESS [None]
  - PRURITUS GENERALISED [None]
  - PULMONARY CONGESTION [None]
  - RENAL DISORDER [None]
  - RESTLESSNESS [None]
  - SHOCK [None]
  - SPLEEN CONGESTION [None]
  - VOMITING [None]
